FAERS Safety Report 12576002 (Version 1)
Quarter: 2016Q3

REPORT INFORMATION
  Report Type: Report from Study
  Country: US (occurrence: US)
  Receive Date: 20160720
  Receipt Date: 20160720
  Transmission Date: 20161109
  Serious: Yes (Other)
  Sender: FDA-Public Use
  Company Number: US-ASTELLAS-2016US027604

PATIENT
  Age: 78 Year
  Sex: Female

DRUGS (8)
  1. ERLOTINIB [Suspect]
     Active Substance: ERLOTINIB
     Indication: PANCREATIC CARCINOMA
     Dosage: ONCE DAILY, ON DAYS 1-28, TOTAL DOSE OF 1125 MG
     Route: 048
     Dates: start: 20110616
  2. ERLOTINIB [Suspect]
     Active Substance: ERLOTINIB
     Dosage: UNK, UNKNOWN FREQ.
     Route: 048
     Dates: start: 20110714
  3. ERLOTINIB [Suspect]
     Active Substance: ERLOTINIB
     Dosage: UNK, UNKNOWN FREQ.
     Route: 048
     Dates: start: 20110811
  4. VISMODEGIB [Suspect]
     Active Substance: VISMODEGIB
     Dosage: UNK UNK, UNKNOWN FREQ.
     Route: 048
     Dates: start: 20110714
  5. VISMODEGIB [Suspect]
     Active Substance: VISMODEGIB
     Dosage: UNK UNK, UNKNOWN FREQ.
     Route: 048
     Dates: start: 20110915
  6. ERLOTINIB [Suspect]
     Active Substance: ERLOTINIB
     Dosage: UNK, UNKNOWN FREQ.
     Route: 048
     Dates: start: 20110915
  7. VISMODEGIB [Suspect]
     Active Substance: VISMODEGIB
     Indication: PANCREATIC CARCINOMA
     Dosage: UNK UNK, UNKNOWN FREQ. TOTAL DOSE WAS 4200 MG
     Route: 048
     Dates: start: 20110616
  8. VISMODEGIB [Suspect]
     Active Substance: VISMODEGIB
     Dosage: UNK UNK, UNKNOWN FREQ.
     Route: 048
     Dates: start: 20110811

REACTIONS (3)
  - Fatigue [Unknown]
  - Anaemia [Unknown]
  - Weight decreased [Unknown]
